FAERS Safety Report 11934711 (Version 2)
Quarter: 2016Q1

REPORT INFORMATION
  Report Type: Report from Study
  Country: US (occurrence: US)
  Receive Date: 20160121
  Receipt Date: 20160219
  Transmission Date: 20160526
  Serious: Yes (Disabling)
  Sender: FDA-Public Use
  Company Number: US-SA-2015SA157464

PATIENT
  Age: 58 Year
  Sex: Male

DRUGS (1)
  1. LEMTRADA [Suspect]
     Active Substance: ALEMTUZUMAB
     Indication: MULTIPLE SCLEROSIS
     Route: 041
     Dates: start: 20150921, end: 20150924

REACTIONS (12)
  - Dysgraphia [Not Recovered/Not Resolved]
  - Disease progression [Not Recovered/Not Resolved]
  - Asthenia [Not Recovered/Not Resolved]
  - Nasal congestion [Unknown]
  - Bowel movement irregularity [Not Recovered/Not Resolved]
  - Ill-defined disorder [Unknown]
  - Disability [Not Recovered/Not Resolved]
  - Rash generalised [Recovered/Resolved]
  - Dysstasia [Not Recovered/Not Resolved]
  - Nasopharyngitis [Unknown]
  - Bleeding time prolonged [Unknown]
  - Rash [Not Recovered/Not Resolved]

NARRATIVE: CASE EVENT DATE: 201509
